FAERS Safety Report 8399447 (Version 2)
Quarter: 2013Q4

REPORT INFORMATION
  Report Type: Spontaneous
  Country: US (occurrence: US)
  Receive Date: 20120210
  Receipt Date: 20131227
  Transmission Date: 20140711
  Serious: Yes (Hospitalization)
  Sender: FDA-Public Use
  Company Number: US-BAYER-2012-012534

PATIENT
  Age: 25 Year
  Sex: Female

DRUGS (2)
  1. BEYAZ [Suspect]
     Indication: CONTRACEPTION
     Dosage: UNK UNK, CONT
     Dates: start: 20110812
  2. ZOLOFT [Concomitant]
     Indication: DEPRESSION
     Dosage: 40 MG, UNK
     Route: 048

REACTIONS (2)
  - Pulmonary embolism [Recovered/Resolved]
  - Haemoptysis [Recovered/Resolved]
